FAERS Safety Report 7525245-3 (Version None)
Quarter: 2011Q2

REPORT INFORMATION
  Report Type: 
  Country: None (occurrence: None)
  Receive Date: 20110602
  Receipt Date: 20110602
  Transmission Date: 20111010
  Serious: Yes (Hospitalization, Other)
  Sender: FDA-Public Use
  Company Number: None

PATIENT
  Sex: Female
  Weight: 65.7716 kg

DRUGS (2)
  1. FOSAMAX [Suspect]
     Indication: OSTEOPENIA
     Dosage: MONTHLY
     Dates: start: 20000101, end: 20060101
  2. EVISTA [Suspect]
     Indication: OSTEOPENIA
     Dosage: MONTHLY
     Dates: start: 20070901, end: 20080101

REACTIONS (5)
  - FEELING ABNORMAL [None]
  - TOOTH LOSS [None]
  - HEART RATE INCREASED [None]
  - HOT FLUSH [None]
  - HEART RATE DECREASED [None]
